FAERS Safety Report 21984162 (Version 1)
Quarter: 2023Q1

REPORT INFORMATION
  Report Type: Other
  Country: ZA (occurrence: None)
  Receive Date: 20230213
  Receipt Date: 20230213
  Transmission Date: 20230417
  Serious: Yes (Other)
  Sender: FDA-Public Use
  Company Number: ZA-ROCHE-3280116

PATIENT
  Sex: Male

DRUGS (1)
  1. OCREVUS [Suspect]
     Active Substance: OCRELIZUMAB
     Indication: Relapsing multiple sclerosis
     Dosage: THERE AFTER 600MG EVERY 6 MONTHS
     Route: 041
     Dates: start: 20211011

REACTIONS (2)
  - Multiple sclerosis [Unknown]
  - Demyelination [Unknown]
